FAERS Safety Report 23543398 (Version 2)
Quarter: 2024Q1

REPORT INFORMATION
  Report Type: Spontaneous
  Country: IT (occurrence: IT)
  Receive Date: 20240220
  Receipt Date: 20240316
  Transmission Date: 20240410
  Serious: Yes (Other)
  Sender: FDA-Public Use
  Company Number: IT-UCBSA-2024007221

PATIENT
  Age: 36 Year
  Sex: Female

DRUGS (2)
  1. CERTOLIZUMAB PEGOL [Suspect]
     Active Substance: CERTOLIZUMAB PEGOL
     Indication: Psoriasis
     Dosage: INJECTION; 400 MILLIGRAM, EV 2 WEEKS(QOW), AT WEEK 0, 2, 4
     Route: 058
  2. CERTOLIZUMAB PEGOL [Suspect]
     Active Substance: CERTOLIZUMAB PEGOL
     Indication: Psoriatic arthropathy
     Dosage: INJECTION; 200 MILLIGRAM, EV 2 WEEKS(QOW)
     Route: 058

REACTIONS (5)
  - Pyoderma gangrenosum [Recovering/Resolving]
  - Psoriasis [Recovering/Resolving]
  - Palmoplantar pustulosis [Recovering/Resolving]
  - Neutrophilic dermatosis [Recovering/Resolving]
  - Paradoxical skin reaction [Recovering/Resolving]
